FAERS Safety Report 23974681 (Version 2)
Quarter: 2024Q3

REPORT INFORMATION
  Report Type: Report from Study
  Country: US (occurrence: US)
  Receive Date: 20240614
  Receipt Date: 20240730
  Transmission Date: 20241016
  Serious: Yes (Other)
  Sender: ABBVIE
  Company Number: US-ABBVIE-5799740

PATIENT
  Sex: Female

DRUGS (1)
  1. RINVOQ [Suspect]
     Active Substance: UPADACITINIB
     Indication: Crohn^s disease
     Route: 048
     Dates: start: 202307

REACTIONS (4)
  - Cardiac failure [Recovering/Resolving]
  - Pancreatitis [Recovering/Resolving]
  - Hepatic pain [Not Recovered/Not Resolved]
  - Dysphonia [Not Recovered/Not Resolved]
